FAERS Safety Report 7032011-4 (Version None)
Quarter: 2010Q4

REPORT INFORMATION
  Report Type: 
  Country: None (occurrence: None)
  Receive Date: 20101007
  Receipt Date: 20100927
  Transmission Date: 20110411
  Serious: Yes (Disabling)
  Sender: FDA-Public Use
  Company Number: FR-BAYER-201041132GPV

PATIENT
  Age: 17 Year
  Sex: Female

DRUGS (2)
  1. YASMIN [Suspect]
     Indication: PRODUCT USED FOR UNKNOWN INDICATION
     Route: 048
     Dates: start: 20090901, end: 20100801
  2. ISOTRETINOIN [Suspect]
     Indication: PRODUCT USED FOR UNKNOWN INDICATION
     Dates: start: 20090901, end: 20100501

REACTIONS (3)
  - PAPILLOEDEMA [None]
  - RETINAL VEIN THROMBOSIS [None]
  - VISUAL ACUITY REDUCED [None]
